FAERS Safety Report 13538850 (Version 2)
Quarter: 2017Q4

REPORT INFORMATION
  Report Type: Spontaneous
  Country: US (occurrence: US)
  Receive Date: 20170512
  Receipt Date: 20171121
  Transmission Date: 20180320
  Serious: No
  Sender: FDA-Public Use
  Company Number: US-JNJFOC-20170316652

PATIENT
  Sex: Male

DRUGS (80)
  1. RISPERIDONE. [Suspect]
     Active Substance: RISPERIDONE
     Indication: PSYCHOTIC DISORDER
     Route: 048
     Dates: start: 20120214
  2. RISPERIDONE. [Suspect]
     Active Substance: RISPERIDONE
     Indication: AFFECT LABILITY
     Route: 048
     Dates: start: 20081020, end: 20081119
  3. RISPERIDONE. [Suspect]
     Active Substance: RISPERIDONE
     Indication: SCHIZOPHRENIA
     Dosage: VARYING DOSES OF 03 MG AND 04 MG
     Route: 048
     Dates: start: 20100922, end: 20100927
  4. RISPERDAL [Suspect]
     Active Substance: RISPERIDONE
     Indication: INSOMNIA
     Route: 048
     Dates: start: 20101012
  5. INVEGA [Suspect]
     Active Substance: PALIPERIDONE
     Indication: ANXIETY
     Route: 048
     Dates: start: 20080827, end: 20090522
  6. INVEGA SUSTENNA [Suspect]
     Active Substance: PALIPERIDONE PALMITATE
     Indication: SCHIZOPHRENIA
     Route: 030
     Dates: start: 20120306, end: 20120814
  7. RISPERIDONE. [Suspect]
     Active Substance: RISPERIDONE
     Indication: ANXIETY
     Dosage: VARYING DOSES OF 03 MG AND 04 MG
     Route: 048
     Dates: start: 20100922, end: 20100927
  8. RISPERIDONE. [Suspect]
     Active Substance: RISPERIDONE
     Indication: INSOMNIA
     Route: 048
     Dates: start: 20081214, end: 20090516
  9. RISPERIDONE. [Suspect]
     Active Substance: RISPERIDONE
     Indication: SCHIZOPHRENIA
     Route: 048
     Dates: start: 20081020, end: 20081119
  10. RISPERDAL [Suspect]
     Active Substance: RISPERIDONE
     Indication: PSYCHOTIC DISORDER
     Route: 048
     Dates: start: 20101012
  11. RISPERDAL [Suspect]
     Active Substance: RISPERIDONE
     Indication: SCHIZOPHRENIA
     Route: 048
     Dates: start: 20081212
  12. INVEGA [Suspect]
     Active Substance: PALIPERIDONE
     Indication: SCHIZOPHRENIA
     Route: 048
     Dates: start: 20100922, end: 20101012
  13. INVEGA SUSTENNA [Suspect]
     Active Substance: PALIPERIDONE PALMITATE
     Indication: ANXIETY
     Dosage: VARYING DOSES OF 117MG, 156MG AND 234MG VARYING FREQUENCIES INCLUDED(UNSPECIFIED AND EVERY 04 WEEKS)
     Route: 030
     Dates: start: 20101214, end: 20110907
  14. INVEGA SUSTENNA [Suspect]
     Active Substance: PALIPERIDONE PALMITATE
     Indication: AFFECT LABILITY
     Dosage: VARYING DOSES OF 117MG, 156MG AND 234MG VARYING FREQUENCIES INCLUDED(UNSPECIFIED AND EVERY 04 WEEKS)
     Route: 030
     Dates: start: 20101214, end: 20110907
  15. INVEGA SUSTENNA [Suspect]
     Active Substance: PALIPERIDONE PALMITATE
     Indication: AFFECT LABILITY
     Route: 030
     Dates: start: 20120213
  16. RISPERIDONE. [Suspect]
     Active Substance: RISPERIDONE
     Indication: ANXIETY
     Route: 048
     Dates: start: 20080827, end: 20080924
  17. RISPERIDONE. [Suspect]
     Active Substance: RISPERIDONE
     Indication: ANXIETY
     Route: 048
     Dates: start: 20081214, end: 20090516
  18. RISPERIDONE. [Suspect]
     Active Substance: RISPERIDONE
     Indication: SCHIZOPHRENIA
     Route: 048
     Dates: start: 20081214, end: 20090516
  19. RISPERIDONE. [Suspect]
     Active Substance: RISPERIDONE
     Indication: SCHIZOPHRENIA
     Route: 048
     Dates: start: 20120214
  20. INVEGA [Suspect]
     Active Substance: PALIPERIDONE
     Indication: ANXIETY
     Route: 048
     Dates: end: 20101214
  21. INVEGA [Suspect]
     Active Substance: PALIPERIDONE
     Indication: INSOMNIA
     Route: 048
     Dates: start: 20100922, end: 20101012
  22. INVEGA [Suspect]
     Active Substance: PALIPERIDONE
     Indication: AFFECT LABILITY
     Route: 048
     Dates: start: 20080827, end: 20090522
  23. INVEGA SUSTENNA [Suspect]
     Active Substance: PALIPERIDONE PALMITATE
     Indication: INSOMNIA
     Route: 030
     Dates: end: 20120907
  24. INVEGA SUSTENNA [Suspect]
     Active Substance: PALIPERIDONE PALMITATE
     Indication: SCHIZOPHRENIA
     Route: 030
     Dates: end: 20120907
  25. INVEGA SUSTENNA [Suspect]
     Active Substance: PALIPERIDONE PALMITATE
     Indication: SCHIZOPHRENIA
     Dosage: VARYING DOSES OF 117MG, 156MG AND 234MG VARYING FREQUENCIES INCLUDED(UNSPECIFIED AND EVERY 04 WEEKS)
     Route: 030
     Dates: start: 20101214, end: 20110907
  26. RISPERIDONE. [Suspect]
     Active Substance: RISPERIDONE
     Indication: ANXIETY
     Route: 048
     Dates: start: 20081020, end: 20081119
  27. RISPERIDONE. [Suspect]
     Active Substance: RISPERIDONE
     Indication: INSOMNIA
     Route: 048
     Dates: start: 20080827, end: 20080924
  28. RISPERIDONE. [Suspect]
     Active Substance: RISPERIDONE
     Indication: AFFECT LABILITY
     Route: 048
     Dates: start: 20120214
  29. RISPERIDONE. [Suspect]
     Active Substance: RISPERIDONE
     Indication: AFFECT LABILITY
     Route: 048
     Dates: start: 20081214, end: 20090516
  30. RISPERDAL [Suspect]
     Active Substance: RISPERIDONE
     Indication: ANXIETY
     Route: 048
     Dates: start: 20101012
  31. RISPERDAL [Suspect]
     Active Substance: RISPERIDONE
     Indication: ANXIETY
     Route: 048
     Dates: start: 20081212
  32. RISPERDAL [Suspect]
     Active Substance: RISPERIDONE
     Indication: INSOMNIA
     Route: 048
     Dates: start: 20081008
  33. RISPERDAL [Suspect]
     Active Substance: RISPERIDONE
     Indication: AFFECT LABILITY
     Route: 048
     Dates: start: 20081212
  34. RISPERDAL [Suspect]
     Active Substance: RISPERIDONE
     Indication: SCHIZOPHRENIA
     Route: 048
     Dates: start: 20081008
  35. INVEGA [Suspect]
     Active Substance: PALIPERIDONE
     Indication: PSYCHOTIC DISORDER
     Dosage: VARYING DOSES 0F 06 MG AND 09 MG
     Route: 048
     Dates: start: 20101012, end: 20101129
  36. INVEGA [Suspect]
     Active Substance: PALIPERIDONE
     Indication: SCHIZOPHRENIA
     Route: 048
     Dates: start: 20080827, end: 20090522
  37. INVEGA [Suspect]
     Active Substance: PALIPERIDONE
     Indication: SCHIZOPHRENIA
     Route: 048
     Dates: end: 20101214
  38. INVEGA SUSTENNA [Suspect]
     Active Substance: PALIPERIDONE PALMITATE
     Indication: PSYCHOTIC DISORDER
     Route: 030
     Dates: end: 20120907
  39. INVEGA SUSTENNA [Suspect]
     Active Substance: PALIPERIDONE PALMITATE
     Indication: PSYCHOTIC DISORDER
     Route: 030
     Dates: start: 20120306, end: 20120814
  40. INVEGA SUSTENNA [Suspect]
     Active Substance: PALIPERIDONE PALMITATE
     Indication: ANXIETY
     Route: 030
     Dates: start: 20120306, end: 20120814
  41. INVEGA SUSTENNA [Suspect]
     Active Substance: PALIPERIDONE PALMITATE
     Indication: AFFECT LABILITY
     Route: 030
     Dates: end: 20120907
  42. RISPERIDONE. [Suspect]
     Active Substance: RISPERIDONE
     Indication: INSOMNIA
     Route: 048
     Dates: start: 20120214
  43. RISPERIDONE. [Suspect]
     Active Substance: RISPERIDONE
     Indication: AFFECT LABILITY
     Route: 048
     Dates: start: 20080827, end: 20080924
  44. RISPERIDONE. [Suspect]
     Active Substance: RISPERIDONE
     Indication: AFFECT LABILITY
     Dosage: VARYING DOSES OF 03 MG AND 04 MG
     Route: 048
     Dates: start: 20100922, end: 20100927
  45. RISPERDAL [Suspect]
     Active Substance: RISPERIDONE
     Indication: ANXIETY
     Route: 048
     Dates: start: 20081008
  46. RISPERDAL [Suspect]
     Active Substance: RISPERIDONE
     Indication: INSOMNIA
     Route: 048
     Dates: start: 20081212
  47. RISPERDAL [Suspect]
     Active Substance: RISPERIDONE
     Indication: AFFECT LABILITY
     Route: 048
     Dates: start: 20081008
  48. INVEGA [Suspect]
     Active Substance: PALIPERIDONE
     Indication: PSYCHOTIC DISORDER
     Route: 048
     Dates: end: 20101214
  49. INVEGA [Suspect]
     Active Substance: PALIPERIDONE
     Indication: ANXIETY
     Dosage: VARYING DOSES 0F 06 MG AND 09 MG
     Route: 048
     Dates: start: 20101012, end: 20101129
  50. INVEGA [Suspect]
     Active Substance: PALIPERIDONE
     Indication: INSOMNIA
     Route: 048
     Dates: start: 20080827, end: 20090522
  51. INVEGA [Suspect]
     Active Substance: PALIPERIDONE
     Indication: AFFECT LABILITY
     Dosage: VARYING DOSES 0F 06 MG AND 09 MG
     Route: 048
     Dates: start: 20101012, end: 20101129
  52. INVEGA [Suspect]
     Active Substance: PALIPERIDONE
     Indication: SCHIZOPHRENIA
     Dosage: VARYING DOSES 0F 06 MG AND 09 MG
     Route: 048
     Dates: start: 20101012, end: 20101129
  53. INVEGA SUSTENNA [Suspect]
     Active Substance: PALIPERIDONE PALMITATE
     Indication: ANXIETY
     Route: 030
     Dates: start: 20120213
  54. RISPERIDONE. [Suspect]
     Active Substance: RISPERIDONE
     Indication: PSYCHOTIC DISORDER
     Route: 048
     Dates: start: 20081214, end: 20090516
  55. RISPERIDONE. [Suspect]
     Active Substance: RISPERIDONE
     Indication: ANXIETY
     Route: 048
     Dates: start: 20120214
  56. RISPERIDONE. [Suspect]
     Active Substance: RISPERIDONE
     Indication: INSOMNIA
     Route: 048
     Dates: start: 20081020, end: 20081119
  57. RISPERIDONE. [Suspect]
     Active Substance: RISPERIDONE
     Indication: INSOMNIA
     Dosage: VARYING DOSES OF 03 MG AND 04 MG
     Route: 048
     Dates: start: 20100922, end: 20100927
  58. RISPERDAL [Suspect]
     Active Substance: RISPERIDONE
     Indication: PSYCHOTIC DISORDER
     Route: 048
     Dates: start: 20081212
  59. RISPERDAL [Suspect]
     Active Substance: RISPERIDONE
     Indication: AFFECT LABILITY
     Route: 048
     Dates: start: 20101012
  60. INVEGA [Suspect]
     Active Substance: PALIPERIDONE
     Indication: INSOMNIA
     Route: 048
     Dates: end: 20101214
  61. INVEGA [Suspect]
     Active Substance: PALIPERIDONE
     Indication: AFFECT LABILITY
     Route: 048
     Dates: end: 20101214
  62. INVEGA SUSTENNA [Suspect]
     Active Substance: PALIPERIDONE PALMITATE
     Indication: PSYCHOTIC DISORDER
     Route: 030
     Dates: start: 20120213
  63. INVEGA SUSTENNA [Suspect]
     Active Substance: PALIPERIDONE PALMITATE
     Indication: SCHIZOPHRENIA
     Route: 030
     Dates: start: 20120213
  64. RISPERIDONE. [Suspect]
     Active Substance: RISPERIDONE
     Indication: PSYCHOTIC DISORDER
     Route: 048
     Dates: start: 20080827, end: 20080924
  65. INVEGA [Suspect]
     Active Substance: PALIPERIDONE
     Indication: PSYCHOTIC DISORDER
     Route: 048
     Dates: start: 20080827, end: 20090522
  66. INVEGA [Suspect]
     Active Substance: PALIPERIDONE
     Indication: PSYCHOTIC DISORDER
     Route: 048
     Dates: start: 20100922, end: 20101012
  67. INVEGA [Suspect]
     Active Substance: PALIPERIDONE
     Indication: AFFECT LABILITY
     Route: 048
     Dates: start: 20100922, end: 20101012
  68. INVEGA SUSTENNA [Suspect]
     Active Substance: PALIPERIDONE PALMITATE
     Indication: ANXIETY
     Route: 030
     Dates: end: 20120907
  69. INVEGA SUSTENNA [Suspect]
     Active Substance: PALIPERIDONE PALMITATE
     Indication: INSOMNIA
     Route: 030
     Dates: start: 20120306, end: 20120814
  70. INVEGA SUSTENNA [Suspect]
     Active Substance: PALIPERIDONE PALMITATE
     Indication: INSOMNIA
     Dosage: VARYING DOSES OF 117MG, 156MG AND 234MG VARYING FREQUENCIES INCLUDED(UNSPECIFIED AND EVERY 04 WEEKS)
     Route: 030
     Dates: start: 20101214, end: 20110907
  71. RISPERIDONE. [Suspect]
     Active Substance: RISPERIDONE
     Indication: PSYCHOTIC DISORDER
     Dosage: VARYING DOSES OF 03 MG AND 04 MG
     Route: 048
     Dates: start: 20100922, end: 20100927
  72. RISPERIDONE. [Suspect]
     Active Substance: RISPERIDONE
     Indication: PSYCHOTIC DISORDER
     Route: 048
     Dates: start: 20081020, end: 20081119
  73. RISPERIDONE. [Suspect]
     Active Substance: RISPERIDONE
     Indication: SCHIZOPHRENIA
     Route: 048
     Dates: start: 20080827, end: 20080924
  74. RISPERDAL [Suspect]
     Active Substance: RISPERIDONE
     Indication: PSYCHOTIC DISORDER
     Route: 048
     Dates: start: 20081008
  75. RISPERDAL [Suspect]
     Active Substance: RISPERIDONE
     Indication: SCHIZOPHRENIA
     Route: 048
     Dates: start: 20101012
  76. INVEGA [Suspect]
     Active Substance: PALIPERIDONE
     Indication: ANXIETY
     Route: 048
     Dates: start: 20100922, end: 20101012
  77. INVEGA [Suspect]
     Active Substance: PALIPERIDONE
     Indication: INSOMNIA
     Dosage: VARYING DOSES 0F 06 MG AND 09 MG
     Route: 048
     Dates: start: 20101012, end: 20101129
  78. INVEGA SUSTENNA [Suspect]
     Active Substance: PALIPERIDONE PALMITATE
     Indication: PSYCHOTIC DISORDER
     Dosage: VARYING DOSES OF 117MG, 156MG AND 234MG VARYING FREQUENCIES INCLUDED(UNSPECIFIED AND EVERY 04 WEEKS)
     Route: 030
     Dates: start: 20101214, end: 20110907
  79. INVEGA SUSTENNA [Suspect]
     Active Substance: PALIPERIDONE PALMITATE
     Indication: INSOMNIA
     Route: 030
     Dates: start: 20120213
  80. INVEGA SUSTENNA [Suspect]
     Active Substance: PALIPERIDONE PALMITATE
     Indication: AFFECT LABILITY
     Route: 030
     Dates: start: 20120306, end: 20120814

REACTIONS (2)
  - Emotional disorder [Unknown]
  - Gynaecomastia [Unknown]
